FAERS Safety Report 5528340-3 (Version None)
Quarter: 2007Q4

REPORT INFORMATION
  Report Type: 
  Country: None (occurrence: None)
  Receive Date: 20071128
  Receipt Date: 20071114
  Transmission Date: 20080405
  Serious: Yes (Hospitalization)
  Sender: FDA-Public Use
  Company Number: AU-PFIZER INC-2007092686

PATIENT
  Sex: Male
  Weight: 72 kg

DRUGS (10)
  1. MARAVIROC [Suspect]
     Indication: HIV INFECTION
     Route: 048
  2. AVANZA [Concomitant]
     Dosage: DAILY DOSE:300MG
     Route: 048
  3. ASPIRIN [Concomitant]
     Dosage: DAILY DOSE:100
     Route: 048
  4. RABEPRAZOLE SODIUM [Concomitant]
     Dosage: DAILY DOSE:20MG
     Route: 048
  5. RITONAVIR [Concomitant]
     Route: 048
  6. TMC-114 [Concomitant]
     Route: 048
  7. TRUVADA [Concomitant]
     Dosage: TEXT:300/200 MILLIGRAM
     Route: 048
  8. FAMCICLOVIR [Concomitant]
     Route: 048
  9. FLUCONAZOLE [Concomitant]
     Dosage: DAILY DOSE:200MG
     Route: 048
  10. RALTEGRAVIR [Concomitant]
     Route: 048

REACTIONS (1)
  - MYOCARDIAL INFARCTION [None]
